FAERS Safety Report 9439664 (Version 1)
Quarter: 2013Q3

REPORT INFORMATION
  Report Type: Spontaneous
  Country: US (occurrence: US)
  Receive Date: 20130805
  Receipt Date: 20130805
  Transmission Date: 20140515
  Serious: No
  Sender: FDA-Public Use
  Company Number: US-PFIZER INC-2013183985

PATIENT
  Age: 44 Year
  Sex: Female

DRUGS (3)
  1. EFFEXOR XR [Suspect]
     Dosage: 300 MG, 1X/DAY (150MG, 2 TABLETS IN THE MORNING)
  2. CETIRIZINE HYDROCHLORIDE [Concomitant]
     Indication: HYPERSENSITIVITY
     Dosage: UNK
  3. ABILIFY [Concomitant]
     Dosage: 20 MG, UNK

REACTIONS (1)
  - Drug withdrawal syndrome [Unknown]
